FAERS Safety Report 8382965-9 (Version None)
Quarter: 2012Q2

REPORT INFORMATION
  Report Type: 
  Country: None (occurrence: None)
  Receive Date: 20120524
  Receipt Date: 20120521
  Transmission Date: 20120825
  Serious: No
  Sender: FDA-Public Use
  Company Number: US-BAYER-2012-050781

PATIENT
  Age: 66 Year
  Sex: Female

DRUGS (1)
  1. CIPROFLOXACIN HCL [Suspect]
     Indication: INFECTION
     Dosage: 500 MG BID FOR 15 DAYS
     Dates: start: 20120208

REACTIONS (1)
  - INSOMNIA [None]
